FAERS Safety Report 24627547 (Version 4)
Quarter: 2024Q4

REPORT INFORMATION
  Report Type: Spontaneous
  Country: US (occurrence: US)
  Receive Date: 20241116
  Receipt Date: 20241220
  Transmission Date: 20250115
  Serious: No
  Sender: SANOFI AVENTIS
  Company Number: US-SA-2024SA329106

PATIENT
  Age: 40 Year
  Sex: Female

DRUGS (1)
  1. KEVZARA [Suspect]
     Active Substance: SARILUMAB
     Indication: Rheumatoid arthritis
     Dosage: 200 MG, QOW
     Route: 058
     Dates: start: 202201

REACTIONS (19)
  - Joint swelling [Unknown]
  - Arthralgia [Unknown]
  - Sneezing [Unknown]
  - Cough [Unknown]
  - Pruritus [Unknown]
  - Oropharyngeal pain [Unknown]
  - Anxiety [Unknown]
  - Skin irritation [Unknown]
  - Lacrimation increased [Unknown]
  - Abnormal behaviour [Unknown]
  - Mouth ulceration [Unknown]
  - Depression [Unknown]
  - Alopecia [Unknown]
  - Haemorrhoidal haemorrhage [Unknown]
  - Mood altered [Unknown]
  - Rash pruritic [Unknown]
  - Rash [Unknown]
  - Eye pain [Unknown]
  - Headache [Unknown]

NARRATIVE: CASE EVENT DATE: 20241001
